FAERS Safety Report 24453821 (Version 2)
Quarter: 2024Q4

REPORT INFORMATION
  Report Type: Spontaneous
  Country: MX (occurrence: MX)
  Receive Date: 20241017
  Receipt Date: 20241018
  Transmission Date: 20250115
  Serious: No
  Sender: ROCHE
  Company Number: MX-ROCHE-3448152

PATIENT
  Sex: Female

DRUGS (3)
  1. RITUXIMAB [Suspect]
     Active Substance: RITUXIMAB
     Indication: Multiple sclerosis
     Dosage: FREQUENCY: SEMESTRAL? FREQUENCY TEXT:SEMESTRAL
     Route: 065
     Dates: start: 201812
  2. RITUXIMAB [Suspect]
     Active Substance: RITUXIMAB
     Dosage: FREQUENCY: SEMESTRAL? FREQUENCY TEXT:SEMESTRAL
     Route: 065
     Dates: start: 2019
  3. OCRELIZUMAB [Suspect]
     Active Substance: OCRELIZUMAB
     Indication: Multiple sclerosis
     Dosage: DOSE AND FREQUENCY WERE NOT PROVIDED
     Route: 065
     Dates: start: 202301

REACTIONS (3)
  - Off label use [Unknown]
  - Blood creatinine decreased [Unknown]
  - Blood glucose increased [Unknown]
